FAERS Safety Report 25838747 (Version 1)
Quarter: 2025Q3

REPORT INFORMATION
  Report Type: Spontaneous
  Country: CN (occurrence: CN)
  Receive Date: 20250924
  Receipt Date: 20250924
  Transmission Date: 20251021
  Serious: Yes (Other)
  Sender: CHEPLAPHARM
  Company Number: CN-CHEPLA-2025011014

PATIENT
  Age: 20 Year
  Sex: Male

DRUGS (6)
  1. OLANZAPINE [Suspect]
     Active Substance: OLANZAPINE
     Indication: Psychotic symptom
     Dosage: EVERY NIGHT AT 20:00?DAILY DOSE: 2.5 MILLIGRAM
     Route: 048
     Dates: start: 20250901, end: 20250902
  2. OLANZAPINE [Suspect]
     Active Substance: OLANZAPINE
     Indication: Psychotic symptom
     Dosage: EVERY NIGHT AT 20:00?DAILY DOSE: 5 MILLIGRAM
     Route: 048
     Dates: start: 20250902, end: 20250903
  3. OLANZAPINE [Suspect]
     Active Substance: OLANZAPINE
     Indication: Psychotic symptom
     Dosage: EVERY NIGHT AT 20:00?DAILY DOSE: 7.5 MILLIGRAM
     Route: 048
     Dates: start: 20250903, end: 20250904
  4. OLANZAPINE [Suspect]
     Active Substance: OLANZAPINE
     Indication: Psychotic symptom
     Dosage: EVERY NIGHT AT 20:00?DAILY DOSE: 10 MILLIGRAM
     Route: 048
     Dates: start: 20250904, end: 20250908
  5. OLANZAPINE [Suspect]
     Active Substance: OLANZAPINE
     Indication: Psychotic symptom
     Dosage: EVERY NIGHT AT 20:00?DAILY DOSE: 12.5 MILLIGRAM
     Route: 048
     Dates: start: 20250908, end: 20250911
  6. OLANZAPINE [Suspect]
     Active Substance: OLANZAPINE
     Indication: Psychotic symptom
     Dosage: EVERY NIGHT AT 20:00?DAILY DOSE: 15 MILLIGRAM
     Route: 048
     Dates: start: 20250911, end: 20250915

REACTIONS (2)
  - Hepatic failure [Recovering/Resolving]
  - Liver injury [Recovering/Resolving]

NARRATIVE: CASE EVENT DATE: 20250915
